FAERS Safety Report 7602623-5 (Version None)
Quarter: 2011Q3

REPORT INFORMATION
  Report Type: 
  Country: None (occurrence: None)
  Receive Date: 20110701
  Receipt Date: 20090827
  Transmission Date: 20111222
  Serious: Yes (Other)
  Sender: FDA-Public Use
  Company Number: SIM_00031_2011

PATIENT
  Sex: Female

DRUGS (1)
  1. STYE EYE RELIEF (HOMEOPATHIC) [Suspect]
     Indication: HORDEOLUM
     Dosage: (2 GTT QID (OPHTHALMIC)
     Route: 047
     Dates: start: 20090826, end: 20090826

REACTIONS (9)
  - PERIORBITAL HAEMATOMA [None]
  - IMPAIRED WORK ABILITY [None]
  - HYPERSENSITIVITY [None]
  - EYELID INFECTION [None]
  - BALANCE DISORDER [None]
  - EYE SWELLING [None]
  - VISUAL IMPAIRMENT [None]
  - SCAR [None]
  - EYE IRRITATION [None]
